FAERS Safety Report 15268507 (Version 1)
Quarter: 2018Q3

REPORT INFORMATION
  Report Type: Spontaneous
  Country: US (occurrence: US)
  Receive Date: 20180726
  Receipt Date: 20180726
  Transmission Date: 20181010
  Serious: Yes (Other)
  Sender: FDA-Public Use
  Company Number: None

PATIENT
  Age: 33 Year
  Sex: Female
  Weight: 153 kg

DRUGS (1)
  1. METRONIDAZOLE TAB 500MG [Suspect]
     Active Substance: METRONIDAZOLE
     Indication: URINARY TRACT INFECTION
     Route: 048
     Dates: start: 20180720, end: 20180722

REACTIONS (4)
  - Abdominal discomfort [None]
  - Back pain [None]
  - Musculoskeletal stiffness [None]
  - Migraine [None]

NARRATIVE: CASE EVENT DATE: 20180721
